FAERS Safety Report 9884312 (Version 1)
Quarter: 2014Q1

REPORT INFORMATION
  Report Type: Spontaneous
  Country: US (occurrence: None)
  Receive Date: 20140207
  Receipt Date: 20140207
  Transmission Date: 20141002
  Serious: Yes (Life-Threatening, Hospitalization, Other)
  Sender: FDA-Public Use
  Company Number: None

PATIENT
  Age: 41 Year
  Sex: Female
  Weight: 65.77 kg

DRUGS (2)
  1. SPRINTEK (ETHINYL/ESTRADIOL NORGESTIMATE) [Suspect]
     Indication: DYSMENORRHOEA
     Dosage: 7/14/13-10/18/2014
     Route: 048
     Dates: start: 20130714
  2. MONO-LINYAH (ETHINYL/ESTRADIOL NORGESTIMATE) [Suspect]
     Indication: DYSMENORRHOEA

REACTIONS (11)
  - Pulmonary embolism [None]
  - Respiratory distress [None]
  - Chest pain [None]
  - Dyspnoea [None]
  - Anaemia [None]
  - Viral infection [None]
  - Pyrexia [None]
  - Loss of consciousness [None]
  - Respiratory arrest [None]
  - Convulsion [None]
  - Ventricular fibrillation [None]
